FAERS Safety Report 5525835-3 (Version None)
Quarter: 2007Q4

REPORT INFORMATION
  Report Type: 
  Country: None (occurrence: None)
  Receive Date: 20071126
  Receipt Date: 20071115
  Transmission Date: 20080405
  Serious: Yes (Death, Life-Threatening)
  Sender: FDA-Public Use
  Company Number: TW-PFIZER INC-2007096704

PATIENT
  Sex: Male
  Weight: 48.3 kg

DRUGS (4)
  1. UNASYN [Suspect]
     Route: 051
     Dates: start: 20071024, end: 20071029
  2. AMPICILLIN [Suspect]
     Route: 051
     Dates: start: 20071024, end: 20071029
  3. MOXIFLOXACIN HCL [Concomitant]
     Route: 051
  4. CEFUROXIME [Concomitant]
     Route: 051

REACTIONS (3)
  - BLOOD PRESSURE DECREASED [None]
  - DYSPNOEA [None]
  - SOMNOLENCE [None]
